FAERS Safety Report 8850626 (Version 1)
Quarter: 2012Q4

REPORT INFORMATION
  Report Type: 
  Country: US (occurrence: US)
  Receive Date: 20121019
  Receipt Date: 20121019
  Transmission Date: 20130627
  Serious: Yes (Hospitalization)
  Sender: FDA-Public Use
  Company Number: US-ASTRAZENECA-2012SE78302

PATIENT
  Age: 49 Year
  Sex: Female

DRUGS (3)
  1. NEXIUM [Suspect]
     Route: 048
  2. NEXIUM [Suspect]
     Dosage: 2 CAPSULES EVERY 2 OR 3 DAYS
     Route: 048
  3. NEXIUM [Suspect]
     Route: 048

REACTIONS (3)
  - Vomiting [Unknown]
  - Drug dose omission [Unknown]
  - Off label use [Unknown]
